FAERS Safety Report 5486523-5 (Version None)
Quarter: 2007Q3

REPORT INFORMATION
  Report Type: 
  Country: None (occurrence: None)
  Receive Date: 20070919
  Receipt Date: 20070517
  Transmission Date: 20080115
  Serious: No
  Sender: FDA-Public Use
  Company Number: 2007RL000237

PATIENT

DRUGS (2)
  1. OMACOR [Suspect]
     Indication: DRUG USE FOR UNKNOWN INDICATION
  2. ^COMBINATION OF OTHER PRODUCTS^ [Concomitant]

REACTIONS (2)
  - ABDOMINAL PAIN [None]
  - MYALGIA [None]
